FAERS Safety Report 8318840-5 (Version None)
Quarter: 2012Q2

REPORT INFORMATION
  Report Type: 
  Country: None (occurrence: None)
  Receive Date: 20120427
  Receipt Date: 20090826
  Transmission Date: 20120825
  Serious: No
  Sender: FDA-Public Use
  Company Number: US-TEVA-2009009973

PATIENT
  Sex: Female
  Weight: 49.94 kg

DRUGS (3)
  1. NUVIGIL [Suspect]
     Indication: FATIGUE
     Dosage: 150 MILLIGRAM;
     Route: 048
     Dates: start: 20090826
  2. VITAMIN TAB [Concomitant]
     Dates: start: 20070101
  3. XYREM [Concomitant]
     Dosage: 4.5 GRAM;
     Dates: start: 20060101

REACTIONS (1)
  - SOMNOLENCE [None]
